FAERS Safety Report 5636908-9 (Version None)
Quarter: 2008Q1

REPORT INFORMATION
  Report Type: 
  Country: None (occurrence: None)
  Receive Date: 20080225
  Receipt Date: 20070602
  Transmission Date: 20080703
  Serious: Yes (Death)
  Sender: FDA-Public Use
  Company Number: US-PURDUE-USA_2007_0031737

PATIENT
  Sex: Female

DRUGS (1)
  1. OXYCONTIN [Suspect]
     Indication: SYSTEMIC LUPUS ERYTHEMATOSUS
     Dosage: 40 MG, TID
     Dates: start: 19940625, end: 20011116

REACTIONS (3)
  - CARDIOMEGALY [None]
  - CARDIOMYOPATHY [None]
  - MYOCARDIAL INFARCTION [None]
